FAERS Safety Report 8628636 (Version 7)
Quarter: 2017Q2

REPORT INFORMATION
  Report Type: Report from Study
  Country: CA (occurrence: CA)
  Receive Date: 20120621
  Receipt Date: 20170601
  Transmission Date: 20170830
  Serious: Yes (Hospitalization, Other)
  Sender: FDA-Public Use
  Company Number: CA-ROCHE-1078891

PATIENT
  Age: 33 Year
  Sex: Female
  Weight: 83.9 kg

DRUGS (8)
  1. RITUXAN [Suspect]
     Active Substance: RITUXIMAB
     Indication: RHEUMATOID ARTHRITIS
     Dosage: FREQUENCY DAY 1 AND DAY 15
     Route: 042
     Dates: start: 20100617, end: 20170106
  2. MORPHINE [Concomitant]
     Active Substance: MORPHINE
     Route: 065
  3. METHOTREXATE. [Concomitant]
     Active Substance: METHOTREXATE
     Route: 065
  4. DIPHENHYDRAMINE HCL [Concomitant]
     Active Substance: DIPHENHYDRAMINE HYDROCHLORIDE
     Route: 048
     Dates: start: 20100617, end: 20170106
  5. RITUXAN [Suspect]
     Active Substance: RITUXIMAB
     Route: 042
     Dates: start: 20130607
  6. ACETAMINOPHEN. [Concomitant]
     Active Substance: ACETAMINOPHEN
     Route: 048
     Dates: start: 20100617, end: 20170106
  7. PREDNISONE. [Concomitant]
     Active Substance: PREDNISONE
     Route: 065
  8. METHYLPREDNISOLONE. [Concomitant]
     Active Substance: METHYLPREDNISOLONE
     Route: 042
     Dates: start: 20100617, end: 20170106

REACTIONS (9)
  - Foot operation [Unknown]
  - Abdominal wall disorder [Unknown]
  - Ankle operation [Unknown]
  - Immunoglobulins decreased [Unknown]
  - Rheumatoid arthritis [Not Recovered/Not Resolved]
  - Cellulitis [Unknown]
  - Ulcer [Unknown]
  - Viral upper respiratory tract infection [Unknown]
  - Sinusitis [Unknown]

NARRATIVE: CASE EVENT DATE: 20120604
